FAERS Safety Report 5627684-4 (Version None)
Quarter: 2008Q1

REPORT INFORMATION
  Report Type: 
  Country: None (occurrence: None)
  Receive Date: 20080215
  Receipt Date: 20080215
  Transmission Date: 20080703
  Serious: Yes (Hospitalization)
  Sender: FDA-Public Use
  Company Number: A0709821A

PATIENT
  Age: 43 Year
  Sex: Female

DRUGS (4)
  1. ALLI [Suspect]
     Dosage: 2CAP PER DAY
     Route: 048
     Dates: start: 20071121, end: 20071215
  2. UNKNOWN [Concomitant]
  3. LEVOTHYROXINE SODIUM [Concomitant]
  4. WELLBUTRIN [Concomitant]

REACTIONS (3)
  - ABDOMINAL PAIN UPPER [None]
  - ADVERSE EVENT [None]
  - LOSS OF CONSCIOUSNESS [None]
